FAERS Safety Report 24282191 (Version 3)
Quarter: 2024Q3

REPORT INFORMATION
  Report Type: Spontaneous
  Country: DE (occurrence: DE)
  Receive Date: 20240904
  Receipt Date: 20240910
  Transmission Date: 20241017
  Serious: Yes (Other)
  Sender: ELI LILLY AND CO
  Company Number: DE-TORRENT-00027202

PATIENT
  Age: 79 Year
  Sex: Female
  Weight: 57 kg

DRUGS (3)
  1. DULOXETINE HYDROCHLORIDE [Suspect]
     Active Substance: DULOXETINE HYDROCHLORIDE
     Indication: Polyneuropathy
     Dosage: 30 MG, DAILY (0-0-1)
     Route: 065
  2. CANDESARTAN [Concomitant]
     Active Substance: CANDESARTAN
     Indication: Blood pressure abnormal
     Dosage: 16 MG, DAILY (1-0-0)
     Route: 065
     Dates: start: 2001
  3. AMLODIPINE [Concomitant]
     Active Substance: AMLODIPINE BESYLATE
     Indication: Blood pressure abnormal
     Dosage: 5 MG, UNKNOWN (0.5-0.5-0)
     Route: 065
     Dates: start: 2016

REACTIONS (2)
  - Neovascular age-related macular degeneration [Unknown]
  - Condition aggravated [Unknown]
